FAERS Safety Report 10936662 (Version 1)
Quarter: 2015Q1

REPORT INFORMATION
  Report Type: Spontaneous
  Country: US (occurrence: None)
  Receive Date: 20150129
  Receipt Date: 20150129
  Transmission Date: 20150721
  Serious: No
  Sender: FDA-Public Use
  Company Number: A-NJ2014-105528

PATIENT
  Age: 89 Year
  Sex: Female

DRUGS (11)
  1. OPSUMIT [Suspect]
     Active Substance: MACITENTAN
     Indication: PRODUCT USED FOR UNKNOWN INDICATION
     Route: 048
     Dates: start: 20140805, end: 20140824
  2. SILDENAFIL. [Concomitant]
     Active Substance: SILDENAFIL
  3. CITALOPRAM [Concomitant]
     Active Substance: CITALOPRAM HYDROBROMIDE
  4. KCL (POTASSIUM CHLORIDE) [Concomitant]
  5. OMEPRAZOLE. [Concomitant]
     Active Substance: OMEPRAZOLE
  6. FUROSEMIDE. [Concomitant]
     Active Substance: FUROSEMIDE
  7. LEVOTHY6ROXINE [Concomitant]
  8. JANTOVEN (WARFARIN SODIUM [Concomitant]
  9. RANEXA (RANOLAZINE) [Concomitant]
  10. PRAVASTATIN [Concomitant]
     Active Substance: PRAVASTATIN\PRAVASTATIN SODIUM
  11. CARTIA (DILTIAZEM HYDROCHLORIDE) [Concomitant]

REACTIONS (2)
  - Erythema [None]
  - Swelling face [None]
